FAERS Safety Report 4846997-7 (Version None)
Quarter: 2005Q4

REPORT INFORMATION
  Report Type: 
  Country: None (occurrence: None)
  Receive Date: 20051201
  Receipt Date: 20051123
  Transmission Date: 20060501
  Serious: Yes (Other)
  Sender: FDA-Public Use
  Company Number: 2005159283

PATIENT
  Age: 70 Year
  Sex: Male
  Weight: 120.2032 kg

DRUGS (8)
  1. ACTIFED COLD + ALLERGY (PSEUDOEPHEDRINE, TRIPROLIDINE) [Suspect]
     Indication: NASOPHARYNGITIS
     Dosage: 1 TABLET 4 TIMES PER DAY,ORAL
     Route: 048
     Dates: start: 19750101, end: 20051123
  2. AMLODIPINE BESYLATE [Concomitant]
  3. PHENYTOIN SODIUM [Concomitant]
  4. ISOSORBIDE DINITRATE [Concomitant]
  5. LEVOTHYROXINE SODIUM [Concomitant]
  6. FUROSEMIDE [Concomitant]
  7. METOPROLOL (METOPROLOL) [Concomitant]
  8. CLONIDINE [Concomitant]

REACTIONS (3)
  - BLADDER DISTENSION [None]
  - URINARY INCONTINENCE [None]
  - URINARY RETENTION [None]
